FAERS Safety Report 10206863 (Version 1)
Quarter: 2014Q2

REPORT INFORMATION
  Report Type: Spontaneous
  Country: US (occurrence: None)
  Receive Date: 20140528
  Receipt Date: 20140528
  Transmission Date: 20141212
  Serious: Yes (Disabling)
  Sender: FDA-Public Use
  Company Number: None

PATIENT
  Age: 38 Year
  Sex: Male
  Weight: 99.79 kg

DRUGS (2)
  1. CIPRO [Suspect]
     Indication: IRRITABLE BOWEL SYNDROME
     Route: 048
  2. CIPRO [Suspect]
     Indication: COLITIS ULCERATIVE
     Route: 048

REACTIONS (11)
  - Pain [None]
  - Paraesthesia [None]
  - Hypoaesthesia [None]
  - Dizziness [None]
  - Malaise [None]
  - Headache [None]
  - Anxiety [None]
  - Panic reaction [None]
  - Amnesia [None]
  - Asthenia [None]
  - Joint swelling [None]
